FAERS Safety Report 4426092-1 (Version None)
Quarter: 2004Q3

REPORT INFORMATION
  Report Type: 
  Country: None (occurrence: None)
  Receive Date: 20040811
  Receipt Date: 20040727
  Transmission Date: 20050211
  Serious: Yes (Hospitalization)
  Sender: FDA-Public Use
  Company Number: BRO-007664

PATIENT
  Sex: Female

DRUGS (15)
  1. PROHANCE [Suspect]
     Indication: ATHEROSCLEROSIS
     Dosage: IV
     Route: 042
     Dates: start: 20040617, end: 20040617
  2. ULTRAVIST 300 [Suspect]
     Indication: ATHEROSCLEROSIS
     Dosage: 3.1 GM IV
     Route: 042
     Dates: start: 20040617, end: 20040617
  3. ASPIRIN [Concomitant]
  4. COVERSUM /GFR/, (PERINDOPRIL) [Concomitant]
  5. NITRODERM [Concomitant]
  6. PRAVASTATIN SODIUM [Concomitant]
  7. TOREM /GFR/, (TORASEMIDE) [Concomitant]
  8. INSULATARD NPH HUMAN [Concomitant]
  9. ACTRAPID MC, (INSULIN) [Concomitant]
  10. MEPHANOL, (ALLOPURINOL) [Concomitant]
  11. CHLORTHALIDONE [Concomitant]
  12. RECORMON, (ERYTHROPOIETIN HUMAN) [Concomitant]
  13. CA-ACETAT [Concomitant]
  14. BELOCK [Concomitant]
  15. ALUCOL, (ALGELDRATE) [Concomitant]

REACTIONS (2)
  - CONDITION AGGRAVATED [None]
  - RENAL FAILURE [None]
